FAERS Safety Report 9717638 (Version 1)
Quarter: 2013Q4

REPORT INFORMATION
  Report Type: Spontaneous
  Country: US (occurrence: US)
  Receive Date: 20131127
  Receipt Date: 20131127
  Transmission Date: 20140711
  Serious: Yes (Other)
  Sender: FDA-Public Use
  Company Number: US-PFIZER INC-2013337329

PATIENT
  Age: 56 Year
  Sex: Female
  Weight: 108.84 kg

DRUGS (9)
  1. LYRICA [Suspect]
     Indication: NEURALGIA
     Dosage: 75 MG, 3X/DAY
     Route: 048
     Dates: start: 2003, end: 201311
  2. LYRICA [Suspect]
     Dosage: 50 MG, 2X/DAY
     Route: 048
     Dates: start: 201311
  3. LISINOPRIL W/HYDROCHLOROTHIAZIDE [Concomitant]
     Indication: HYPERTENSION
     Dosage: 20/12.5 MG, UNK
  4. ATRIPLA [Concomitant]
     Indication: HIV INFECTION
     Dosage: UNK
  5. BUPROPION [Concomitant]
     Indication: DEPRESSION
     Dosage: 300 MG, UNK
  6. OXYCODONE [Concomitant]
     Indication: PAIN
     Dosage: 10 MG, 4X/DAY
     Route: 048
  7. BACLOFEN [Concomitant]
     Dosage: 10 MG, UNK
  8. ALPRAZOLAM [Concomitant]
     Dosage: 0.25 MG, 2X/DAY
  9. MORPHINE [Concomitant]
     Dosage: 15 MG, UNK

REACTIONS (5)
  - Musculoskeletal disorder [Unknown]
  - Limb injury [Unknown]
  - Hypokinesia [Unknown]
  - Drug ineffective [Unknown]
  - Body height decreased [Unknown]
